FAERS Safety Report 17205125 (Version 2)
Quarter: 2020Q1

REPORT INFORMATION
  Report Type: Spontaneous
  Country: JP (occurrence: JP)
  Receive Date: 20191227
  Receipt Date: 20200102
  Transmission Date: 20200409
  Serious: Yes (Other)
  Sender: FDA-Public Use
  Company Number: JP-TERSERA THERAPEUTICS LLC-2019TRS002945

PATIENT

DRUGS (2)
  1. ZOLADEX [Suspect]
     Active Substance: GOSERELIN ACETATE
     Dosage: 1.8 MILLIGRAM, EVERY 4 WEEKS
     Route: 058
     Dates: start: 201912
  2. ZOLADEX [Suspect]
     Active Substance: GOSERELIN ACETATE
     Indication: UTERINE LEIOMYOMA
     Dosage: 1.8 MILLIGRAM, EVERY 4 WEEKS
     Route: 058
     Dates: end: 201902

REACTIONS (3)
  - Off label use [Unknown]
  - Genital haemorrhage [Recovering/Resolving]
  - Injection site pain [Unknown]

NARRATIVE: CASE EVENT DATE: 201912
